FAERS Safety Report 12276730 (Version 1)
Quarter: 2016Q2

REPORT INFORMATION
  Report Type: Spontaneous
  Country: US (occurrence: US)
  Receive Date: 20160418
  Receipt Date: 20160418
  Transmission Date: 20160815
  Serious: No
  Sender: FDA-Public Use
  Company Number: US-PFIZER INC-2016180160

PATIENT
  Age: 13 Year
  Sex: Male
  Weight: 47.63 kg

DRUGS (1)
  1. ADVIL [Suspect]
     Active Substance: IBUPROFEN
     Indication: PAIN IN EXTREMITY
     Dosage: 200 MG, UNK

REACTIONS (3)
  - Throat irritation [Unknown]
  - Foreign body [Unknown]
  - Product shape issue [Unknown]

NARRATIVE: CASE EVENT DATE: 20160303
